FAERS Safety Report 7757253-1 (Version None)
Quarter: 2011Q3

REPORT INFORMATION
  Report Type: 
  Country: None (occurrence: None)
  Receive Date: 20110916
  Receipt Date: 20110915
  Transmission Date: 20111222
  Serious: Yes (Death)
  Sender: FDA-Public Use
  Company Number: JP-PFIZER INC-2011172397

PATIENT
  Age: 68 Year
  Sex: Male
  Weight: 73 kg

DRUGS (14)
  1. SELBEX [Concomitant]
     Indication: GASTRIC ULCER
     Dosage: 0.5 G, 3X/DAY
     Route: 048
     Dates: start: 20020313
  2. FAMOSTAGINE [Concomitant]
     Indication: GASTRIC ULCER
     Dosage: 20 MG, 2X/DAY
     Route: 048
     Dates: start: 20010131
  3. WARFARIN [Concomitant]
     Indication: ATRIAL FIBRILLATION
     Dosage: 4 MG, 1X/DAY
     Route: 048
     Dates: start: 20010131
  4. TAMSULOSIN [Concomitant]
     Indication: BENIGN PROSTATIC HYPERPLASIA
     Dosage: 0.2 MG, 1X/DAY
     Route: 048
     Dates: start: 20010131
  5. VARENICLINE TARTRATE [Suspect]
     Indication: NICOTINE DEPENDENCE
     Dosage: UNK
     Route: 048
     Dates: start: 20110418
  6. LASIX [Concomitant]
     Indication: CARDIAC FAILURE
     Dosage: 40 MG, 2X/DAY
     Route: 048
     Dates: start: 20010127
  7. LIPITOR [Concomitant]
     Indication: HYPERCHOLESTEROLAEMIA
     Dosage: 10 MG, 1X/DAY
     Route: 048
     Dates: start: 20040726
  8. METFORMIN HCL [Concomitant]
     Indication: DIABETES MELLITUS
     Dosage: 250 MG, 2X/DAY
     Route: 048
     Dates: start: 19901116
  9. ISOSORBIDE MONONITRATE [Concomitant]
     Indication: ANGINA PECTORIS
     Dosage: 20 MG, 2X/DAY
     Route: 048
     Dates: start: 20010131
  10. DORNER [Concomitant]
     Indication: ARTERIOSCLEROSIS OBLITERANS
     Dosage: 40 MG, 3X/DAY
     Route: 048
     Dates: start: 20010808
  11. GLIMICRON [Concomitant]
     Indication: DIABETES MELLITUS
     Dosage: 40 MG, 1X/DAY
     Route: 048
     Dates: start: 20040520
  12. ALDACTONE [Concomitant]
     Indication: CARDIAC FAILURE
     Dosage: 50 MG, 2X/DAY
     Route: 048
     Dates: start: 20010127
  13. BASEN [Concomitant]
     Indication: DIABETES MELLITUS
     Dosage: 0.2 MG, 3X/DAY
     Route: 048
     Dates: start: 20040518
  14. ENALAPRIL MALEATE [Concomitant]
     Indication: HYPERTENSION
     Dosage: 5 MG, 1X/DAY
     Route: 048
     Dates: start: 20010926

REACTIONS (9)
  - METABOLIC ACIDOSIS [None]
  - DISSEMINATED INTRAVASCULAR COAGULATION [None]
  - TACHYCARDIA [None]
  - CARDIAC FAILURE CONGESTIVE [None]
  - DYSURIA [None]
  - PULMONARY OEDEMA [None]
  - PNEUMONIA [None]
  - BLOOD PRESSURE INCREASED [None]
  - LOW CARDIAC OUTPUT SYNDROME [None]
